FAERS Safety Report 18839301 (Version 1)
Quarter: 2021Q1

REPORT INFORMATION
  Report Type: Report from Study
  Country: US (occurrence: US)
  Receive Date: 20210203
  Receipt Date: 20210203
  Transmission Date: 20210419
  Serious: No
  Sender: FDA-Public Use
  Company Number: US-EXELIXIS-CABO-20033818

PATIENT
  Sex: Female

DRUGS (1)
  1. CABOMETYX [Suspect]
     Active Substance: CABOZANTINIB S-MALATE
     Indication: RENAL CELL CARCINOMA
     Dosage: 60 MG, QD
     Dates: start: 20200913

REACTIONS (20)
  - Glossodynia [Recovering/Resolving]
  - Decreased appetite [Recovering/Resolving]
  - Flatulence [Unknown]
  - Myalgia [Not Recovered/Not Resolved]
  - Lymphadenopathy [Recovered/Resolved]
  - Blood pressure increased [Recovering/Resolving]
  - Nausea [Recovering/Resolving]
  - Weight decreased [Unknown]
  - International normalised ratio increased [Not Recovered/Not Resolved]
  - Platelet count decreased [Not Recovered/Not Resolved]
  - Fatigue [Recovering/Resolving]
  - Diarrhoea [Recovering/Resolving]
  - Pruritus [Unknown]
  - Oral pain [Recovering/Resolving]
  - Oropharyngeal pain [Unknown]
  - Dyspepsia [Recovering/Resolving]
  - Urinary tract infection [Unknown]
  - Gingival pain [Unknown]
  - Dry throat [Unknown]
  - Arthralgia [Not Recovered/Not Resolved]
